FAERS Safety Report 6198979-3 (Version None)
Quarter: 2009Q2

REPORT INFORMATION
  Report Type: 
  Country: None (occurrence: None)
  Receive Date: 20090522
  Receipt Date: 20090519
  Transmission Date: 20091009
  Serious: Yes (Disabling)
  Sender: FDA-Public Use
  Company Number: GB-TEVA-195518ISR

PATIENT
  Age: 31 Year
  Sex: Female
  Weight: 100 kg

DRUGS (2)
  1. AMOXICILLIN [Suspect]
     Route: 048
     Dates: start: 20090501
  2. PREDNISOLONE [Suspect]
     Route: 048
     Dates: start: 20090501

REACTIONS (2)
  - DEAFNESS [None]
  - TINNITUS [None]
